FAERS Safety Report 5895224-0 (Version None)
Quarter: 2008Q3

REPORT INFORMATION
  Report Type: 
  Country: None (occurrence: None)
  Receive Date: 20080924
  Receipt Date: 20080918
  Transmission Date: 20090109
  Serious: Yes (Disabling)
  Sender: FDA-Public Use
  Company Number: A0748137A

PATIENT
  Age: 64 Year
  Sex: Female

DRUGS (4)
  1. PARNATE [Suspect]
     Indication: DEPRESSION
     Dosage: 30MG TWICE PER DAY
     Route: 048
     Dates: start: 19830101
  2. LEVOTHYROXINE SODIUM [Concomitant]
  3. PROVIGIL [Concomitant]
  4. AMBIEN [Concomitant]

REACTIONS (6)
  - BLOOD TESTOSTERONE DECREASED [None]
  - DIZZINESS [None]
  - FEELING ABNORMAL [None]
  - LABORATORY TEST ABNORMAL [None]
  - ORTHOSTATIC HYPOTENSION [None]
  - PAIN [None]
